FAERS Safety Report 22109031 (Version 1)
Quarter: 2023Q1

REPORT INFORMATION
  Report Type: Spontaneous
  Country: US (occurrence: US)
  Receive Date: 20230317
  Receipt Date: 20230317
  Transmission Date: 20230417
  Serious: Yes (Hospitalization, Other)
  Sender: FDA-Public Use
  Company Number: US-BRISTOL-MYERS SQUIBB COMPANY-2023-036085

PATIENT
  Age: 63 Year
  Sex: Male
  Weight: 76.2 kg

DRUGS (8)
  1. SPRYCEL [Suspect]
     Active Substance: DASATINIB
     Indication: Chronic myeloid leukaemia
     Route: 048
     Dates: start: 20221206, end: 20221227
  2. TASIGNA [Suspect]
     Active Substance: NILOTINIB
     Indication: Chronic myeloid leukaemia
     Dosage: 150 MG TWO TABLET TWICE A DAY (600MG) (50% REDUCTION FOR NOW).
     Route: 048
  3. LIDOCAINE AND PRILOCAINE [Concomitant]
     Active Substance: LIDOCAINE\PRILOCAINE
     Indication: Product used for unknown indication
     Dosage: 2.5-2.5% CREAM 1 EXTERNAL TO SITE 30 MINUTES PRIOR TO TREATMENT .COVER WITH PLASTIC WRAP, ACTIVE-HX
     Dates: start: 20220628
  4. PROCHLORPERAZINE MALEATE [Concomitant]
     Active Substance: PROCHLORPERAZINE MALEATE
     Indication: Product used for unknown indication
     Dosage: 5 MG TABLET 1-2 ORAL AT BEDTIME AS NEEDED ACTIVE -HX ENTRY.
     Dates: start: 20220628
  5. ONDANSETRON HCL [Concomitant]
     Active Substance: ONDANSETRON HYDROCHLORIDE
     Indication: Nausea
     Dosage: 8 MG TABLET 1 ORAL 3 TIMES A DAY AS NEEDED. HX ENTRY.
     Dates: start: 20220629
  6. COLACE [Concomitant]
     Active Substance: DOCUSATE SODIUM
     Indication: Product used for unknown indication
     Dosage: 100 MG CAPSULE 1 ORAL TWICE A DAY ACTIVE -HX ENTRY.
     Dates: start: 20220811
  7. FOLIC ACID [Concomitant]
     Active Substance: FOLIC ACID
     Indication: Product used for unknown indication
     Dosage: 1 MG TABLET 1 ORAL DAILY HX ENTRY.
     Route: 048
     Dates: start: 20221207
  8. MIDODRINE HYDROCHLORIDE [Concomitant]
     Active Substance: MIDODRINE HYDROCHLORIDE
     Indication: Product used for unknown indication
     Dosage: 10 MG TABLET 1 ORAL THREE TIMES DAILY ACTIVE -HX ENTRY.

REACTIONS (3)
  - Dermatitis allergic [Unknown]
  - Abdominal pain [Unknown]
  - Pneumonitis [Unknown]

NARRATIVE: CASE EVENT DATE: 20221206
